FAERS Safety Report 5228877-0 (Version None)
Quarter: 2007Q1

REPORT INFORMATION
  Report Type: 
  Country: None (occurrence: None)
  Receive Date: 20070205
  Receipt Date: 20070124
  Transmission Date: 20070707
  Serious: Yes (Hospitalization)
  Sender: FDA-Public Use
  Company Number: HQWYE448224JAN07

PATIENT
  Sex: Female

DRUGS (9)
  1. AMIODARONE HCL [Suspect]
     Indication: ATRIAL FIBRILLATION
     Route: 065
     Dates: end: 20060101
  2. COUMADIN [Concomitant]
     Dosage: 1 MG (FREQUENCY NOT PROVIDED)
     Route: 065
  3. METAMUCIL [Concomitant]
  4. CENTRUM [Concomitant]
     Dosage: 1 UNIT EVERY 1 DAY
     Route: 048
  5. DILTIAZEM [Concomitant]
     Indication: TACHYCARDIA
     Dosage: 30 MG EVERY 4-6 HOURS AS NEEDED
     Route: 065
  6. TRAMADOL HCL [Concomitant]
     Indication: PAIN
     Dosage: 50 MG EVERY 8 HOURS AS NEEDED
     Route: 065
  7. CLONAZEPAM [Concomitant]
     Dosage: 0.5 MG EVERY MORNING AND AFTERNOON / 0.25 MG AT MIDDAY
     Route: 065
  8. TOPROL-XL [Concomitant]
     Dosage: 50 MG (FREQUENCY NOT PROVIDED)
     Route: 065
  9. SENNA [Concomitant]

REACTIONS (3)
  - ASTHENIA [None]
  - HYPOTENSION [None]
  - INTERSTITIAL LUNG DISEASE [None]
